FAERS Safety Report 8398280-3 (Version None)
Quarter: 2012Q2

REPORT INFORMATION
  Report Type: 
  Country: None (occurrence: None)
  Receive Date: 20120531
  Receipt Date: 20120521
  Transmission Date: 20120825
  Serious: Yes (Hospitalization, Other)
  Sender: FDA-Public Use
  Company Number: FR-PFIZER INC-2012128985

PATIENT
  Age: 53 Year
  Sex: Male

DRUGS (11)
  1. LASIX [Suspect]
     Indication: CARDIAC DISORDER
     Dosage: UNK
     Dates: start: 20110101
  2. CEFPODOXIME PROXETIL [Concomitant]
     Dosage: UNK
     Dates: start: 20120216
  3. CORDARONE [Suspect]
     Indication: CARDIAC DISORDER
     Dosage: UNK
     Route: 048
     Dates: start: 20110101
  4. ATORVASTATIN [Concomitant]
     Indication: CARDIAC DISORDER
     Dosage: UNK
     Dates: start: 20110101
  5. POTASSIUM CHLORIDE [Concomitant]
     Indication: CARDIAC DISORDER
     Dosage: UNK
     Dates: start: 20110101
  6. PERINDOPRIL [Concomitant]
     Indication: CARDIAC DISORDER
     Dosage: UNK
     Dates: start: 20110101
  7. PENTOXIFYLLINE [Concomitant]
     Indication: CARDIAC DISORDER
     Dosage: UNK
     Dates: start: 20110101
  8. BISOPROLOL FUMARATE [Suspect]
     Indication: CARDIAC DISORDER
     Dosage: UNK
     Route: 048
     Dates: start: 20110101
  9. BIOCALYPTOL [Concomitant]
     Dosage: UNK
     Dates: start: 20120216
  10. PANOS [Concomitant]
     Dosage: UNK
     Dates: start: 20120216
  11. PARACETAMOL [Concomitant]
     Dosage: UNK
     Dates: start: 20120216

REACTIONS (6)
  - HEAD INJURY [None]
  - FALL [None]
  - SYNCOPE [None]
  - DIARRHOEA [None]
  - CONDUCTION DISORDER [None]
  - RENAL FAILURE ACUTE [None]
